FAERS Safety Report 8508347-4 (Version None)
Quarter: 2012Q3

REPORT INFORMATION
  Report Type: 
  Country: None (occurrence: None)
  Receive Date: 20120713
  Receipt Date: 20120704
  Transmission Date: 20120928
  Serious: Yes (Other)
  Sender: FDA-Public Use
  Company Number: PHHY2012CA049607

PATIENT
  Sex: Male

DRUGS (14)
  1. NITRO-DUR [Concomitant]
     Dosage: 1 DF (0.8 PATCH), BID (EVERY 12 HOURS)
  2. METOPROLOL TARTRATE [Concomitant]
     Dosage: 25 MG, BID
  3. SANDOSTATIN LAR [Suspect]
     Indication: ACROMEGALY
     Dosage: 10 MG, QMO
     Route: 042
     Dates: start: 20081103
  4. VITALUX [Concomitant]
     Dosage: 1 DF, ONCE DAILY
  5. ADALAT CC [Concomitant]
     Dosage: 30 MG, QD
  6. METFORMIN HYDROCHLORIDE [Concomitant]
     Dosage: 500 MG, BID
  7. ZOCOR [Concomitant]
     Dosage: 40 MG, ONCE DAILY
  8. ADALAT CC [Concomitant]
     Dosage: 60 MG, QD
  9. FLOMAX [Concomitant]
     Dosage: 0.4 MG, ONCE DAILY
  10. PLAVIX [Concomitant]
     Dosage: 75 MG, ONCE DAILY
  11. NITROGLYCERIN [Concomitant]
     Dosage: 1 DF (0.4), PRN
     Route: 060
  12. GLICLAZIDE [Concomitant]
     Dosage: 80 MG, BID
  13. FERROUS GLUCONATE [Concomitant]
     Dosage: 300 MG, BID
  14. PANTO [Concomitant]
     Dosage: 40 MG, ONCE DAILY

REACTIONS (2)
  - MYOCARDIAL INFARCTION [None]
  - PNEUMONIA ASPIRATION [None]
